FAERS Safety Report 4724587-4 (Version None)
Quarter: 2005Q3

REPORT INFORMATION
  Report Type: 
  Country: None (occurrence: None)
  Receive Date: 20050719
  Receipt Date: 20050719
  Transmission Date: 20060218
  Serious: Yes (Life-Threatening)
  Sender: FDA-Public Use
  Company Number: None

PATIENT
  Sex: Male
  Weight: 120.2032 kg

DRUGS (2)
  1. PAROXETINE HCL [Suspect]
     Indication: MAJOR DEPRESSION
     Dosage: 30 MG TWO  QD
     Dates: start: 20050602, end: 20050624
  2. PAROXETINE HCL [Suspect]
     Indication: OBSESSIVE-COMPULSIVE DISORDER
     Dosage: 30 MG TWO  QD
     Dates: start: 20050602, end: 20050624

REACTIONS (6)
  - ABNORMAL BEHAVIOUR [None]
  - ALCOHOL USE [None]
  - IMPRISONMENT [None]
  - MENTAL STATUS CHANGES [None]
  - PHYSICAL ASSAULT [None]
  - THINKING ABNORMAL [None]
